FAERS Safety Report 6113165-0 (Version None)
Quarter: 2009Q1

REPORT INFORMATION
  Report Type: 
  Country: None (occurrence: None)
  Receive Date: 20090312
  Receipt Date: 20090304
  Transmission Date: 20090719
  Serious: Yes (Other)
  Sender: FDA-Public Use
  Company Number: BR-PFIZER INC-2009179683

PATIENT

DRUGS (4)
  1. CELEBRA [Suspect]
     Indication: BRUXISM
     Dosage: 200 MG, 2X/DAY
     Route: 048
     Dates: start: 20090302, end: 20090303
  2. SIMVASTATIN [Concomitant]
     Dosage: UNK
     Dates: end: 20090303
  3. GINKGO BILOBA [Concomitant]
     Dosage: UNK
  4. HYPERICUM PERFORATUM [Concomitant]
     Dosage: UNK

REACTIONS (1)
  - DIPLOPIA [None]
